FAERS Safety Report 7211129-7 (Version None)
Quarter: 2011Q1

REPORT INFORMATION
  Report Type: 
  Country: None (occurrence: None)
  Receive Date: 20110105
  Receipt Date: 20101103
  Transmission Date: 20110831
  Serious: Yes (Hospitalization)
  Sender: FDA-Public Use
  Company Number: US-BAYER-201022156NA

PATIENT
  Sex: Female
  Weight: 102.27 kg

DRUGS (11)
  1. YASMIN [Suspect]
     Indication: ACNE
     Route: 048
     Dates: start: 20070724, end: 20080101
  2. CLOTRIMAZOLE [Concomitant]
     Indication: RASH
     Dates: start: 20071001, end: 20081001
  3. PROPRANOLOL [Concomitant]
     Indication: PAIN
     Dates: start: 20080501
  4. YAZ [Suspect]
     Dosage: UNK, QD
     Dates: start: 20080917
  5. ATIVAN [Concomitant]
     Indication: ANXIETY
  6. CLINDAMYCIN [Concomitant]
     Indication: ACNE
     Dates: start: 20080201, end: 20080701
  7. YASMIN [Suspect]
     Indication: CONTRACEPTION
  8. TRAZODONE [Concomitant]
     Indication: SLEEP DISORDER THERAPY
     Dates: start: 20080401, end: 20080501
  9. YAZ [Suspect]
     Indication: PAIN
     Route: 048
     Dates: start: 20080101, end: 20080501
  10. TYLENOL W/ CODEINE [Concomitant]
     Dates: start: 20080401
  11. YAZ [Suspect]
     Indication: ACNE
     Dosage: UNK, QD
     Dates: start: 20080815

REACTIONS (5)
  - DEEP VEIN THROMBOSIS [None]
  - PULMONARY EMBOLISM [None]
  - DYSPNOEA [None]
  - CHEST DISCOMFORT [None]
  - PAIN IN EXTREMITY [None]
